FAERS Safety Report 21193259 (Version 1)
Quarter: 2022Q3

REPORT INFORMATION
  Report Type: Report from Study
  Country: ES (occurrence: ES)
  Receive Date: 20220810
  Receipt Date: 20220810
  Transmission Date: 20221027
  Serious: Yes (Other)
  Sender: FDA-Public Use
  Company Number: None

PATIENT
  Age: 65 Year
  Sex: Female

DRUGS (2)
  1. ALLOPURINOL [Suspect]
     Active Substance: ALLOPURINOL
     Indication: Chemotherapy side effect prophylaxis
     Dosage: DURATION :4 DAYS, ALOPURINOL (318A)
     Route: 065
     Dates: start: 20211026, end: 20211029
  2. FLUDARABINE PHOSPHATE [Suspect]
     Active Substance: FLUDARABINE PHOSPHATE
     Indication: Lymphoma
     Dosage: DURATION :3 DAYS,FLUDARABINA FOSFATO (3698FO)
     Route: 065
     Dates: start: 20211028, end: 20211030

REACTIONS (1)
  - Rash maculo-papular [Recovered/Resolved]

NARRATIVE: CASE EVENT DATE: 20211029
